FAERS Safety Report 10786919 (Version 5)
Quarter: 2015Q2

REPORT INFORMATION
  Report Type: Report from Study
  Country: US (occurrence: US)
  Receive Date: 20150211
  Receipt Date: 20150430
  Transmission Date: 20150821
  Serious: Yes (Hospitalization, Other)
  Sender: FDA-Public Use
  Company Number: US-GILEAD-2015-0133260

PATIENT
  Age: 56 Year
  Sex: Female

DRUGS (6)
  1. ADCIRCA [Concomitant]
     Active Substance: TADALAFIL
  2. REMODULIN [Concomitant]
     Active Substance: TREPROSTINIL
  3. AMBRISENTAN [Suspect]
     Active Substance: AMBRISENTAN
     Indication: PRODUCT USED FOR UNKNOWN INDICATION
     Dosage: 10 MG, QD
     Route: 065
     Dates: start: 20131209
  4. COUMADIN [Concomitant]
     Active Substance: WARFARIN SODIUM
  5. AMBRISENTAN [Suspect]
     Active Substance: AMBRISENTAN
     Dosage: 10 MG, QD
     Route: 065
     Dates: start: 20131009
  6. WARFARIN [Concomitant]
     Active Substance: WARFARIN

REACTIONS (6)
  - Pulmonary arterial hypertension [Unknown]
  - Catheter site erythema [Unknown]
  - Device leakage [Unknown]
  - Hypersomnia [Unknown]
  - Malaise [Unknown]
  - Catheter site infection [Unknown]
